FAERS Safety Report 15369596 (Version 1)
Quarter: 2018Q3

REPORT INFORMATION
  Report Type: Spontaneous
  Country: US (occurrence: US)
  Receive Date: 20180911
  Receipt Date: 20180911
  Transmission Date: 20181010
  Serious: No
  Sender: FDA-Public Use
  Company Number: US-PFIZER INC-2018363849

PATIENT
  Age: 36 Year
  Sex: Female
  Weight: 58 kg

DRUGS (1)
  1. PRISTIQ EXTENDED?RELEASE [Suspect]
     Active Substance: DESVENLAFAXINE SUCCINATE
     Indication: DEPRESSION
     Dosage: 50 MG, DAILY
     Route: 048

REACTIONS (1)
  - Nausea [Recovered/Resolved]
